FAERS Safety Report 14110804 (Version 1)
Quarter: 2017Q4

REPORT INFORMATION
  Report Type: Spontaneous
  Country: JP (occurrence: JP)
  Receive Date: 20171020
  Receipt Date: 20171020
  Transmission Date: 20180321
  Serious: Yes (Hospitalization)
  Sender: FDA-Public Use
  Company Number: JP-MYLANLABS-2017M1064751

PATIENT
  Age: 6 Decade
  Sex: Male

DRUGS (2)
  1. CYCLOPHOSPHAMIDE. [Suspect]
     Active Substance: CYCLOPHOSPHAMIDE
     Indication: BURKITT^S LYMPHOMA
     Route: 065
  2. PREDNISOLONE. [Suspect]
     Active Substance: PREDNISOLONE
     Indication: BURKITT^S LYMPHOMA
     Route: 065

REACTIONS (4)
  - Intestinal perforation [Recovering/Resolving]
  - Abdominal lymphadenopathy [Recovering/Resolving]
  - CSF test abnormal [Recovering/Resolving]
  - Peritonitis [Recovering/Resolving]
